FAERS Safety Report 10256423 (Version 1)
Quarter: 2014Q2

REPORT INFORMATION
  Report Type: Spontaneous
  Country: US (occurrence: US)
  Receive Date: 20140624
  Receipt Date: 20140624
  Transmission Date: 20141212
  Serious: Yes (Hospitalization)
  Sender: FDA-Public Use
  Company Number: US-B.I. PHARMACEUTICALS,INC./RIDGEFIELD-2014-BI-27892BP

PATIENT
  Age: 76 Year
  Sex: Female
  Weight: 95.45 kg

DRUGS (18)
  1. CARVEDILOL [Concomitant]
     Indication: HYPERTENSION
     Dosage: 6.25 MG
     Route: 048
  2. CARVEDILOL [Concomitant]
     Indication: CARDIAC FAILURE CONGESTIVE
  3. DOXAZOSIN [Concomitant]
     Indication: HYPERTENSION
     Dosage: 16 MG
     Route: 048
  4. CRESTOR [Concomitant]
     Indication: BLOOD CHOLESTEROL INCREASED
     Dosage: 5 MG
     Route: 048
  5. FUROSEMIDE [Concomitant]
     Indication: CARDIAC FAILURE CONGESTIVE
     Dosage: 20 MG
     Route: 048
  6. SPIRIVA [Suspect]
     Indication: CHRONIC OBSTRUCTIVE PULMONARY DISEASE
     Dosage: 18 MCG
     Route: 055
     Dates: start: 201404
  7. PROVENTIL [Concomitant]
     Indication: CHRONIC OBSTRUCTIVE PULMONARY DISEASE
     Dosage: FORMULATION: INHALATION AEROSOL; DAILY DOSE: 1 PUFF AS NEEDED
     Route: 055
  8. CAPTOPRIL [Concomitant]
     Indication: HYPERTENSION
     Dosage: 100 MG
     Route: 048
  9. LOSARTAN HCTZ [Concomitant]
     Indication: HYPERTENSION
     Dosage: STRENGTH: 100/25 MG; DAILY DOSE: 100/25 MG
     Route: 048
  10. ASPIRIN [Concomitant]
     Dosage: 81 MG
     Route: 048
  11. LANTUS INSULIN [Concomitant]
     Indication: TYPE 2 DIABETES MELLITUS
     Dosage: 60 U
     Route: 058
  12. LEVOTHYROXINE [Concomitant]
     Dosage: 150 MCG
     Route: 048
  13. MAG OX [Concomitant]
     Dosage: 400 MEQ
     Route: 048
  14. KLOR CON [Concomitant]
     Indication: ADJUVANT THERAPY
     Dosage: 10 MEQ
     Route: 048
  15. PLAVIX [Concomitant]
     Dosage: 75 MG
     Route: 048
  16. AMLODIPINE [Concomitant]
     Indication: HYPERTENSION
     Dosage: 10 MG
     Route: 048
  17. NOVOLOG FLEXPEN INSULIN [Concomitant]
     Indication: TYPE 2 DIABETES MELLITUS
     Dosage: 42 U
     Route: 048
  18. RANEXA [Concomitant]
     Indication: ANGINA PECTORIS
     Dosage: 1000 MG
     Route: 048

REACTIONS (5)
  - Abdominal distension [Recovered/Resolved]
  - Diarrhoea [Recovered/Resolved]
  - Abdominal pain [Recovered/Resolved]
  - Vomiting [Recovered/Resolved]
  - Intestinal obstruction [Recovered/Resolved]
